FAERS Safety Report 4993839-5 (Version None)
Quarter: 2006Q2

REPORT INFORMATION
  Report Type: 
  Country: None (occurrence: None)
  Receive Date: 20060503
  Receipt Date: 20060503
  Transmission Date: 20061013
  Serious: Yes (Hospitalization, Other)
  Sender: FDA-Public Use
  Company Number: None

PATIENT
  Sex: Female
  Weight: 55 kg

DRUGS (3)
  1. CARBOPLATIN [Suspect]
     Indication: OVARIAN EPITHELIAL CANCER
     Dosage: 1015 MG
     Dates: start: 20060412, end: 20060412
  2. TAXOL [Suspect]
     Dosage: 287 MG
     Dates: start: 20060412, end: 20060412
  3. SENOKOT [Concomitant]

REACTIONS (1)
  - ABDOMINAL PAIN [None]
